FAERS Safety Report 7130735-1 (Version None)
Quarter: 2010Q4

REPORT INFORMATION
  Report Type: 
  Country: None (occurrence: None)
  Receive Date: 20101029
  Receipt Date: 20100826
  Transmission Date: 20110411
  Serious: Yes (Hospitalization)
  Sender: FDA-Public Use
  Company Number: DE-003516

PATIENT
  Sex: Male
  Weight: 87 kg

DRUGS (6)
  1. FIRMAGON [Suspect]
     Indication: PROSTATE CANCER
     Dosage: (240 MG 1X SUBCUTANEOUS), (80 MG 1X/MONTH SUBCUTANEOUS)
     Route: 058
     Dates: start: 20090528, end: 20090528
  2. FIRMAGON [Suspect]
     Indication: PROSTATE CANCER
     Dosage: (240 MG 1X SUBCUTANEOUS), (80 MG 1X/MONTH SUBCUTANEOUS)
     Route: 058
     Dates: start: 20090623, end: 20091110
  3. AGGRENOX [Concomitant]
  4. BISOPROLOL [Concomitant]
  5. SIMVASTATIN [Concomitant]
  6. ENALAPRIL [Concomitant]

REACTIONS (4)
  - CEREBRAL ISCHAEMIA [None]
  - CEREBRAL MICROANGIOPATHY [None]
  - GENERAL PHYSICAL CONDITION ABNORMAL [None]
  - MUSCLE TWITCHING [None]
